FAERS Safety Report 8935391 (Version 2)
Quarter: 2013Q1

REPORT INFORMATION
  Report Type: Spontaneous
  Country: DK (occurrence: None)
  Receive Date: 20121119
  Receipt Date: 20121203
  Transmission Date: 20140127
  Serious: Yes (Other)
  Sender: FDA-Public Use
  Company Number: 2012MA013381

PATIENT
  Age: 64 Year
  Sex: Male

DRUGS (7)
  1. VERAPAMIL HYDROCHLORIDE [Suspect]
     Indication: ATRIAL FLUTTER
     Route: 048
  2. BISOPROLOL FUMARATE [Suspect]
     Indication: BLOOD PRESSURE ABNORMAL
     Route: 048
  3. CLOPIDOGREL [Suspect]
     Indication: THROMBOCYTOPENIA
     Route: 048
  4. CYCLOPHOSPHAMIDE [Concomitant]
  5. DOXORUBICIN [Concomitant]
  6. PREDNISOLONE [Concomitant]
  7. VINCRISTINE [Concomitant]

REACTIONS (8)
  - Palpitations [None]
  - Blood pressure decreased [None]
  - Abdominal pain upper [None]
  - Sudden onset of sleep [None]
  - Fatigue [None]
  - Dizziness [None]
  - Atrial flutter [None]
  - Arthralgia [None]
